FAERS Safety Report 17960672 (Version 1)
Quarter: 2020Q2

REPORT INFORMATION
  Report Type: Report from Study
  Country: JP (occurrence: JP)
  Receive Date: 20200630
  Receipt Date: 20200630
  Transmission Date: 20200714
  Serious: Yes (Hospitalization, Other)
  Sender: FDA-Public Use
  Company Number: NVSJ2020JP005899

PATIENT
  Age: 81 Year
  Sex: Female

DRUGS (2)
  1. MEKINIST [Suspect]
     Active Substance: TRAMETINIB DIMETHYL SULFOXIDE
     Indication: NON-SMALL CELL LUNG CANCER
     Dosage: 2 MG
     Route: 048
     Dates: start: 20190108, end: 20190924
  2. TAFINLAR [Suspect]
     Active Substance: DABRAFENIB MESYLATE
     Indication: NON-SMALL CELL LUNG CANCER
     Dosage: 300 MG
     Route: 048
     Dates: start: 20190108, end: 20190924

REACTIONS (22)
  - Pharyngitis [Recovering/Resolving]
  - Gastric ulcer [Recovering/Resolving]
  - Malignant neoplasm progression [Unknown]
  - Anaemia [Not Recovered/Not Resolved]
  - Infection [Not Recovered/Not Resolved]
  - Metastases to bone [Unknown]
  - Stomatitis [Recovered/Resolved]
  - Pain in extremity [Not Recovered/Not Resolved]
  - Renal impairment [Not Recovered/Not Resolved]
  - Blood creatine phosphokinase increased [Recovered/Resolved]
  - Constipation [Not Recovered/Not Resolved]
  - Procedural pain [Unknown]
  - Pain [Recovering/Resolving]
  - Pleural effusion [Recovering/Resolving]
  - Cough [Unknown]
  - Sepsis [Recovering/Resolving]
  - Dyspnoea [Not Recovered/Not Resolved]
  - Urine output decreased [Not Recovered/Not Resolved]
  - Non-small cell lung cancer [Unknown]
  - Blood creatine phosphokinase increased [Recovered/Resolved]
  - Metastases to spine [Unknown]
  - Hypoaesthesia [Not Recovered/Not Resolved]

NARRATIVE: CASE EVENT DATE: 20190129
